FAERS Safety Report 5506638-2 (Version None)
Quarter: 2007Q4

REPORT INFORMATION
  Report Type: 
  Country: None (occurrence: None)
  Receive Date: 20071105
  Receipt Date: 20071026
  Transmission Date: 20080405
  Serious: Yes (Other)
  Sender: FDA-Public Use
  Company Number: US-PURDUE-USA_2007_0028511

PATIENT
  Sex: Female

DRUGS (5)
  1. OXYCONTIN [Suspect]
     Indication: PAIN
     Dosage: UNK, SEE TEXT
  2. INSULIN [Concomitant]
     Dosage: 20 MG, BID
  3. LOPRESSOR [Concomitant]
     Dosage: 50 MG, BID
  4. PREVACID [Concomitant]
     Dosage: 30 MG, BID
  5. FUROSEMIDE [Concomitant]
     Dosage: 40 MG, BID

REACTIONS (8)
  - AGGRESSION [None]
  - DRUG DEPENDENCE [None]
  - DRUG TOLERANCE [None]
  - DRUG WITHDRAWAL SYNDROME [None]
  - HYPERHIDROSIS [None]
  - MALAISE [None]
  - SUICIDAL IDEATION [None]
  - TREMOR [None]
